FAERS Safety Report 12380772 (Version 1)
Quarter: 2016Q2

REPORT INFORMATION
  Report Type: Report from Study
  Country: US (occurrence: US)
  Receive Date: 20160518
  Receipt Date: 20160518
  Transmission Date: 20160815
  Serious: Yes (Other)
  Sender: FDA-Public Use
  Company Number: US-AMGEN-USASL2016061596

PATIENT
  Age: 70 Year
  Sex: Female

DRUGS (1)
  1. REPATHA [Suspect]
     Active Substance: EVOLOCUMAB
     Indication: HYPERCHOLESTEROLAEMIA
     Dosage: 140 MG, Q2WK
     Route: 065

REACTIONS (9)
  - Nausea [Unknown]
  - Back disorder [Unknown]
  - Vomiting [Unknown]
  - Dyspepsia [Unknown]
  - Influenza [Unknown]
  - Malaise [Unknown]
  - Arthralgia [Unknown]
  - Back pain [Unknown]
  - Arthropathy [Unknown]

NARRATIVE: CASE EVENT DATE: 201605
